FAERS Safety Report 8172032-1 (Version None)
Quarter: 2012Q1

REPORT INFORMATION
  Report Type: 
  Country: None (occurrence: None)
  Receive Date: 20120228
  Receipt Date: 20120221
  Transmission Date: 20120608
  Serious: Yes (Hospitalization)
  Sender: FDA-Public Use
  Company Number: DE-SANOFI-AVENTIS-2012SA003481

PATIENT
  Age: 68 Year
  Sex: Female

DRUGS (4)
  1. DOCETAXEL [Suspect]
     Route: 041
     Dates: start: 20111110, end: 20111110
  2. FLUOROURACIL [Suspect]
     Route: 041
     Dates: start: 20111110, end: 20111110
  3. OXALIPLATIN [Suspect]
     Route: 041
     Dates: start: 20111110, end: 20111110
  4. LEUCOVORIN CALCIUM [Suspect]
     Route: 042
     Dates: start: 20111110, end: 20111110

REACTIONS (2)
  - FAILURE TO ANASTOMOSE [None]
  - EMPYEMA [None]
